FAERS Safety Report 9459063 (Version 1)
Quarter: 2013Q3

REPORT INFORMATION
  Report Type: Spontaneous
  Country: DE (occurrence: FR)
  Receive Date: 20130814
  Receipt Date: 20130814
  Transmission Date: 20140515
  Serious: Yes (Hospitalization)
  Sender: FDA-Public Use
  Company Number: FR-FRI-1000047649

PATIENT
  Age: 87 Year
  Sex: Male

DRUGS (8)
  1. MEMANTINE [Suspect]
     Indication: DEMENTIA ALZHEIMER^S TYPE
     Dosage: 1 DF
     Route: 048
     Dates: end: 20120811
  2. ARICEPT [Suspect]
     Dosage: 1 DF
     Route: 048
     Dates: end: 20120811
  3. SERESTA [Suspect]
     Indication: ABNORMAL BEHAVIOUR
     Dosage: 1 DF
     Route: 048
  4. RISPERDAL [Concomitant]
     Indication: ABNORMAL BEHAVIOUR
     Dosage: 0.5 MG
  5. ZOPICLONE [Concomitant]
     Dosage: 7.5 MG
  6. COVERSYL [Concomitant]
  7. PARIET [Concomitant]
  8. STAGID [Concomitant]
     Dosage: 2100 MG

REACTIONS (1)
  - Disturbance in attention [Recovered/Resolved]
